FAERS Safety Report 12649156 (Version 3)
Quarter: 2016Q3

REPORT INFORMATION
  Report Type: Report from Study
  Country: AU (occurrence: AU)
  Receive Date: 20160812
  Receipt Date: 20160929
  Transmission Date: 20161109
  Serious: Yes (Hospitalization)
  Sender: FDA-Public Use
  Company Number: AU-PFIZER INC-2016372924

PATIENT
  Age: 52 Year
  Sex: Male

DRUGS (23)
  1. FLUOROURACIL. [Suspect]
     Active Substance: FLUOROURACIL
     Indication: COLORECTAL CANCER
     Dosage: 400 MG/M2, CYCLIC, OVER 15 MINUTES; DAY 1 OF EACH 14-DAY CYCLE
     Route: 040
     Dates: start: 20150805
  2. METOCLOPRAMIDE. [Concomitant]
     Active Substance: METOCLOPRAMIDE
     Indication: NAUSEA
     Dosage: 30 MG (10 MG, 3 IN 1 D)
     Route: 048
     Dates: start: 20150722
  3. TEMAZEPAM. [Concomitant]
     Active Substance: TEMAZEPAM
     Indication: INSOMNIA
     Dosage: 10-20 MG (AS REQUIRED)
     Route: 048
     Dates: start: 20150907
  4. VENLAFAXINE [Concomitant]
     Active Substance: VENLAFAXINE HYDROCHLORIDE
     Indication: ANXIETY
     Dosage: 225 MG, (225 MG, 1 IN 1 D)
     Route: 048
     Dates: start: 20151125, end: 20160712
  5. BEVACIZUMAB [Suspect]
     Active Substance: BEVACIZUMAB
     Indication: COLORECTAL CANCER
     Dosage: 5 MG/KG, CYCLIC, OVER 46 HRS DAY 1 OF EACH 14-DAY CYCLE
     Route: 042
     Dates: start: 20150805
  6. VENLAFAXINE [Concomitant]
     Active Substance: VENLAFAXINE HYDROCHLORIDE
     Indication: DEPRESSION
  7. CLEXANE [Concomitant]
     Active Substance: ENOXAPARIN SODIUM
     Indication: PULMONARY EMBOLISM
     Dosage: 70 MG, UNK
     Route: 058
     Dates: start: 20160208, end: 20160627
  8. FLUOROURACIL. [Suspect]
     Active Substance: FLUOROURACIL
     Dosage: 2400 MG/M2, CYCLIC, OVER 46 HRS DAY 1 OF EACH 14-DAY CYCLE
     Route: 041
     Dates: start: 20150805
  9. DEXAMETHASONE. [Concomitant]
     Active Substance: DEXAMETHASONE
     Indication: PROPHYLAXIS OF NAUSEA AND VOMITING
     Dosage: TWICE / DAY FOR 2 DAYS POST CHEMOTHERAPY (8 MG)
     Route: 048
     Dates: start: 20150806
  10. METOCLOPRAMIDE. [Concomitant]
     Active Substance: METOCLOPRAMIDE
     Indication: VOMITING
     Dosage: 30 MG (10 MG, 3 IN 1 D)
     Route: 048
     Dates: start: 20150722
  11. VENLAFAXINE [Concomitant]
     Active Substance: VENLAFAXINE HYDROCHLORIDE
     Indication: ELECTROCARDIOGRAM QT PROLONGED
  12. FENTANYL TRANSDERMAL SYSTEM [Concomitant]
     Active Substance: FENTANYL
     Indication: ABDOMINAL PAIN
     Dosage: (100 MG,2 IN 1 WK)
     Route: 062
     Dates: start: 20151230
  13. DICLOFENAC [Concomitant]
     Active Substance: DICLOFENAC
     Indication: BACK PAIN
  14. DEXAMETHASONE. [Concomitant]
     Active Substance: DEXAMETHASONE
     Indication: CHEMOTHERAPY
     Dosage: DAY 1 OF CHEMOTHERAPY (8 MG)
     Route: 040
     Dates: start: 20150705
  15. VENLAFAXINE [Concomitant]
     Active Substance: VENLAFAXINE HYDROCHLORIDE
     Indication: HICCUPS
     Dosage: 150 MG, (150 MG, 1 IN 1 D)
     Route: 048
     Dates: start: 20160712
  16. CLEXANE [Concomitant]
     Active Substance: ENOXAPARIN SODIUM
     Indication: PULMONARY EMBOLISM
     Dosage: (80 MG,2 IN 1 D)
     Route: 058
     Dates: start: 20160321
  17. LEUCOVORIN. [Concomitant]
     Active Substance: LEUCOVORIN
     Indication: COLORECTAL CANCER
     Dosage: 400 MG/M2, CYCLIC, DAY 1 OF EACH 14-DAY CYCLE
     Route: 042
     Dates: start: 20150805
  18. ENDONE [Concomitant]
     Active Substance: OXYCODONE HYDROCHLORIDE
     Indication: ABDOMINAL PAIN
     Dosage: 10 MG (5 MG,2 IN 1 D)
     Route: 048
     Dates: start: 20150703
  19. BLINDED THERAPY [Suspect]
     Active Substance: INVESTIGATIONAL PRODUCT
     Indication: COLORECTAL CANCER
     Dosage: UNK
     Route: 048
     Dates: start: 20150803
  20. ATROPINE. [Concomitant]
     Active Substance: ATROPINE
     Indication: CHEMOTHERAPY
     Dosage: (DAY 1 OF CHEMOTHERAPY 0.4 MG)
     Route: 040
     Dates: start: 20150705
  21. PANADOL [Concomitant]
     Active Substance: ACETAMINOPHEN
     Indication: ABDOMINAL PAIN
     Dosage: (1000 MG,AS REQUIRED)
     Route: 048
     Dates: start: 20151230
  22. IRINOTECAN HCL [Suspect]
     Active Substance: IRINOTECAN HYDROCHLORIDE
     Indication: COLORECTAL CANCER
     Dosage: 180 MG/M2, CYCLIC, DAY 1 OF EACH 14-DAY CYCLE
     Route: 042
     Dates: start: 20150805
  23. DICLOFENAC [Concomitant]
     Active Substance: DICLOFENAC
     Indication: ANALGESIC THERAPY
     Dosage: (50 MG,AS REQUIRED)
     Route: 048
     Dates: start: 20150828

REACTIONS (1)
  - Hypokalaemia [Recovered/Resolved]

NARRATIVE: CASE EVENT DATE: 20160711
